FAERS Safety Report 4537024-X (Version None)
Quarter: 2004Q4

REPORT INFORMATION
  Report Type: 
  Country: None (occurrence: None)
  Receive Date: 20041220
  Receipt Date: 20041210
  Transmission Date: 20050328
  Serious: Yes (Hospitalization)
  Sender: FDA-Public Use
  Company Number: BEWYE263307DEC04

PATIENT
  Age: 65 Year
  Sex: Male

DRUGS (1)
  1. SIROLIMUS (SIROLIMUS, TABLET, 0) [Suspect]
     Indication: RENAL TRANSPLANT
     Dosage: ORAL
     Route: 048
     Dates: start: 20041013

REACTIONS (6)
  - ACUTE PULMONARY OEDEMA [None]
  - BLOOD PRESSURE SYSTOLIC INCREASED [None]
  - CHEST PAIN [None]
  - DYSPNOEA [None]
  - HEART RATE INCREASED [None]
  - LUNG INFILTRATION [None]
